FAERS Safety Report 15807082 (Version 1)
Quarter: 2019Q1

REPORT INFORMATION
  Report Type: Spontaneous
  Country: US (occurrence: US)
  Receive Date: 20190110
  Receipt Date: 20190110
  Transmission Date: 20190417
  Serious: Yes (Death)
  Sender: FDA-Public Use
  Company Number: US-PFIZER INC-2019009734

PATIENT
  Sex: Male

DRUGS (4)
  1. ALPRAZOLAM. [Suspect]
     Active Substance: ALPRAZOLAM
     Dosage: UNK
  2. METHAMPHETAMINE [METAMFETAMINE] [Suspect]
     Active Substance: METHAMPHETAMINE
     Dosage: UNK
  3. COCAINE [Suspect]
     Active Substance: COCAINE
     Dosage: UNK
  4. OXYCODONE/PARACETAMOL [Suspect]
     Active Substance: ACETAMINOPHEN\OXYCODONE HYDROCHLORIDE
     Dosage: UNK

REACTIONS (1)
  - Drug abuse [Fatal]

NARRATIVE: CASE EVENT DATE: 2017
